FAERS Safety Report 16859372 (Version 1)
Quarter: 2019Q3

REPORT INFORMATION
  Report Type: Report from Study
  Country: None (occurrence: US)
  Receive Date: 20190927
  Receipt Date: 20190927
  Transmission Date: 20191005
  Serious: Yes (Other)
  Sender: FDA-Public Use
  Company Number: US-ABBVIE-19K-163-2936727-00

PATIENT
  Sex: Male

DRUGS (3)
  1. SYNTHROID [Suspect]
     Active Substance: LEVOTHYROXINE SODIUM
     Dosage: DOSE 0.112
     Route: 048
  2. SYNTHROID [Suspect]
     Active Substance: LEVOTHYROXINE SODIUM
     Dosage: DOSE 0.125
     Route: 048
  3. SYNTHROID [Suspect]
     Active Substance: LEVOTHYROXINE SODIUM
     Indication: HYPOTHYROIDISM
     Dosage: DOSE 0.150
     Route: 048

REACTIONS (6)
  - Malaise [Unknown]
  - Abdominal distension [Unknown]
  - Cerebrovascular accident [Unknown]
  - Anxiety [Unknown]
  - Seizure [Unknown]
  - Incorrect dose administered [Unknown]
